FAERS Safety Report 7034716-8 (Version None)
Quarter: 2010Q4

REPORT INFORMATION
  Report Type: 
  Country: None (occurrence: None)
  Receive Date: 20101008
  Receipt Date: 20101004
  Transmission Date: 20110411
  Serious: Yes (Death)
  Sender: FDA-Public Use
  Company Number: US-GILEAD-2010-0032322

PATIENT
  Sex: Male
  Weight: 70.37 kg

DRUGS (12)
  1. LETAIRIS [Suspect]
     Indication: PULMONARY ARTERIAL HYPERTENSION
     Route: 048
     Dates: start: 20081205
  2. REVATIO [Concomitant]
  3. OXYGEN [Concomitant]
  4. LASIX [Concomitant]
  5. SPIRONOLACTONE [Concomitant]
  6. LOVASTATIN [Concomitant]
  7. TYLENOL [Concomitant]
  8. NASACORT AQ [Concomitant]
  9. ZYRTEC [Concomitant]
  10. ASCORBIC ACID [Concomitant]
  11. FISH OIL [Concomitant]
  12. MULTI-VITAMIN [Concomitant]

REACTIONS (1)
  - PULMONARY VENO-OCCLUSIVE DISEASE [None]
